FAERS Safety Report 9097688 (Version 1)
Quarter: 2013Q1

REPORT INFORMATION
  Report Type: Report from Study
  Country: DE (occurrence: DE)
  Receive Date: 20130212
  Receipt Date: 20130212
  Transmission Date: 20140127
  Serious: Yes (Death, Other)
  Sender: FDA-Public Use
  Company Number: DE-ROCHE-1190307

PATIENT
  Age: 53 Year
  Sex: Female

DRUGS (2)
  1. ALTEPLASE [Suspect]
     Indication: CEREBROVASCULAR ACCIDENT
     Route: 042
  2. EPTIFIBATIDE [Suspect]
     Indication: ANTIPLATELET THERAPY
     Route: 042

REACTIONS (2)
  - Death [Fatal]
  - Drug ineffective [Unknown]
